FAERS Safety Report 8198298-X (Version None)
Quarter: 2012Q1

REPORT INFORMATION
  Report Type: 
  Country: None (occurrence: None)
  Receive Date: 20120309
  Receipt Date: 20120229
  Transmission Date: 20120608
  Serious: Yes (Hospitalization)
  Sender: FDA-Public Use
  Company Number: US-MERCK-1104USA02221

PATIENT
  Age: 52 Year
  Sex: Female
  Weight: 70 kg

DRUGS (5)
  1. FOSAMAX [Suspect]
     Route: 048
  2. CALCIUM (UNSPECIFIED) [Concomitant]
     Route: 065
  3. HORMONES (UNSPECIFIED) [Concomitant]
     Route: 065
     Dates: start: 19960101, end: 20110101
  4. VITAMINS (UNSPECIFIED) [Concomitant]
     Route: 065
  5. FOSAMAX [Suspect]
     Indication: OSTEOPOROSIS
     Route: 048
     Dates: start: 19960101, end: 20100101

REACTIONS (61)
  - MUSCLE DISORDER [None]
  - VENOUS INSUFFICIENCY [None]
  - DYSPNOEA [None]
  - OEDEMA PERIPHERAL [None]
  - TREMOR [None]
  - LACERATION [None]
  - HYPERLIPIDAEMIA [None]
  - ANAEMIA [None]
  - FRACTURE NONUNION [None]
  - STASIS DERMATITIS [None]
  - ABDOMINAL PAIN [None]
  - FALL [None]
  - RASH PRURITIC [None]
  - MENIERE'S DISEASE [None]
  - HYPOKALAEMIA [None]
  - BACK PAIN [None]
  - HIATUS HERNIA [None]
  - SPASTIC DIPLEGIA [None]
  - VERTIGO [None]
  - OSTEOPENIA [None]
  - HEAD INJURY [None]
  - ADVERSE DRUG REACTION [None]
  - COMPRESSION FRACTURE [None]
  - FEMUR FRACTURE [None]
  - SLEEP APNOEA SYNDROME [None]
  - BLOOD CHOLESTEROL INCREASED [None]
  - ASTHMA [None]
  - METABOLIC ACIDOSIS [None]
  - CARDIOMEGALY [None]
  - NYSTAGMUS [None]
  - PYELONEPHRITIS [None]
  - ATELECTASIS [None]
  - CONTUSION [None]
  - SPINAL OSTEOARTHRITIS [None]
  - LUMBAR RADICULOPATHY [None]
  - JOINT DISLOCATION [None]
  - HYPERTENSION [None]
  - HYDRONEPHROSIS [None]
  - INTERVERTEBRAL DISC DEGENERATION [None]
  - PYURIA [None]
  - NEPHROLITHIASIS [None]
  - SCOLIOSIS [None]
  - URINARY INCONTINENCE [None]
  - PELVI-URETERIC OBSTRUCTION [None]
  - TENDONITIS [None]
  - MYOFASCIAL PAIN SYNDROME [None]
  - ORTHOSTATIC INTOLERANCE [None]
  - CHRONIC OBSTRUCTIVE PULMONARY DISEASE [None]
  - APHAKIA [None]
  - EYE DISORDER [None]
  - RADICULITIS CERVICAL [None]
  - ESCHERICHIA INFECTION [None]
  - AORTIC DISORDER [None]
  - STRABISMUS [None]
  - PNEUMONIA [None]
  - FEMORAL NECK FRACTURE [None]
  - FOOT FRACTURE [None]
  - SPINAL COMPRESSION FRACTURE [None]
  - VIRAL INFECTION [None]
  - SPONDYLOLISTHESIS [None]
  - CATARACT [None]
